FAERS Safety Report 21336434 (Version 1)
Quarter: 2022Q3

REPORT INFORMATION
  Report Type: Spontaneous
  Country: US (occurrence: None)
  Receive Date: 20220915
  Receipt Date: 20220915
  Transmission Date: 20221026
  Serious: Yes (Hospitalization)
  Sender: FDA-Public Use
  Company Number: None

PATIENT
  Sex: Female
  Weight: 53.5 kg

DRUGS (3)
  1. FLUOROURACIL [Suspect]
     Active Substance: FLUOROURACIL
     Dates: start: 20220908
  2. LEUCOVORIN CALCIUM [Suspect]
     Active Substance: LEUCOVORIN CALCIUM
     Dates: end: 20220906
  3. ELOXATIN [Suspect]
     Active Substance: OXALIPLATIN
     Dates: end: 20220906

REACTIONS (12)
  - Abdominal pain [None]
  - Chills [None]
  - Vomiting [None]
  - Constipation [None]
  - Diarrhoea [None]
  - Gastrointestinal mucosa hyperaemia [None]
  - Nausea [None]
  - Colitis [None]
  - Proctitis [None]
  - Gastrointestinal wall thickening [None]
  - Colitis ischaemic [None]
  - Large intestine infection [None]

NARRATIVE: CASE EVENT DATE: 20220908
